FAERS Safety Report 4686471-4 (Version None)
Quarter: 2005Q2

REPORT INFORMATION
  Report Type: 
  Country: None (occurrence: None)
  Receive Date: 20050606
  Receipt Date: 20050525
  Transmission Date: 20051028
  Serious: Yes (Hospitalization)
  Sender: FDA-Public Use
  Company Number: 2005080924

PATIENT
  Age: 62 Year
  Sex: Male
  Weight: 77 kg

DRUGS (8)
  1. CELECOXIB (CELECOXIB) [Suspect]
     Indication: ARTHRALGIA
     Dosage: (2 IN 1 D) ORAL
     Route: 048
     Dates: start: 20040923, end: 20050418
  2. CETIRIZINE HCL [Concomitant]
  3. BECLOMETHASONE DIPROPIONATE [Concomitant]
  4. BENDROFLUMETHIAZIDE(BENDROFLUMETHAIZIDE) [Concomitant]
  5. CROMOGLICATE SODIUM (CROMOGLICATE SODIUM) [Concomitant]
  6. FELODIPINE [Concomitant]
  7. CLARITHROMYCIN [Concomitant]
  8. ASPIRIN [Concomitant]

REACTIONS (3)
  - CARDIAC FAILURE [None]
  - HYPERTROPHIC OBSTRUCTIVE CARDIOMYOPATHY [None]
  - PLEURAL EFFUSION [None]
